FAERS Safety Report 5369628-9 (Version None)
Quarter: 2007Q2

REPORT INFORMATION
  Report Type: 
  Country: None (occurrence: None)
  Receive Date: 20070625
  Receipt Date: 20070613
  Transmission Date: 20071010
  Serious: Yes (Other)
  Sender: FDA-Public Use
  Company Number: IE-PFIZER INC-2007018696

PATIENT
  Age: 59 Year
  Sex: Male
  Weight: 93 kg

DRUGS (10)
  1. LYRICA [Suspect]
     Indication: DIABETIC NEUROPATHY
     Route: 048
     Dates: start: 20060201, end: 20060406
  2. BUMETANIDE [Concomitant]
     Dosage: DAILY DOSE:2MG
     Route: 048
     Dates: start: 20030101
  3. PERINDOPRIL [Concomitant]
     Dosage: DAILY DOSE:4MG
     Route: 048
     Dates: start: 20030101
  4. METOPROLOL SUCCINATE [Concomitant]
     Route: 048
     Dates: start: 20030101
  5. DIGOXIN [Concomitant]
     Dosage: DAILY DOSE:.125MG
     Route: 048
  6. WARFARIN SODIUM [Concomitant]
     Route: 048
  7. PRAVASTATIN [Concomitant]
     Route: 048
  8. ASPIRIN [Concomitant]
     Route: 048
  9. GLUCOPHAGE [Concomitant]
     Route: 048
  10. NOVOMIX [Concomitant]
     Route: 058

REACTIONS (7)
  - CARDIAC FAILURE [None]
  - CREPITATIONS [None]
  - DYSPNOEA EXERTIONAL [None]
  - METABOLIC FUNCTION TEST ABNORMAL [None]
  - OEDEMA PERIPHERAL [None]
  - ORTHOPNOEA [None]
  - WEIGHT INCREASED [None]
